FAERS Safety Report 11180340 (Version 1)
Quarter: 2015Q2

REPORT INFORMATION
  Report Type: Spontaneous
  Country: CN (occurrence: CN)
  Receive Date: 20150611
  Receipt Date: 20150611
  Transmission Date: 20150821
  Serious: Yes (Death, Other)
  Sender: FDA-Public Use
  Company Number: CN-ROXANE LABORATORIES, INC.-2015-RO-00935RO

PATIENT
  Age: 39 Year
  Sex: Female

DRUGS (4)
  1. PREDNISOLONE. [Suspect]
     Active Substance: PREDNISOLONE
     Indication: CASTLEMAN^S DISEASE
     Dosage: 100 MG
     Route: 065
  2. THEPRUBICINE [Suspect]
     Active Substance: PIRARUBICIN
     Indication: CASTLEMAN^S DISEASE
     Dosage: 30 MG
     Route: 065
  3. CYCLOPHOSPHAMIDE. [Suspect]
     Active Substance: CYCLOPHOSPHAMIDE
     Indication: CASTLEMAN^S DISEASE
     Dosage: 0.4 MG
     Route: 065
  4. VINDESINE [Suspect]
     Active Substance: VINDESINE
     Indication: CASTLEMAN^S DISEASE
     Dosage: 4 MG
     Route: 065

REACTIONS (4)
  - Bone marrow failure [Unknown]
  - Haemorrhage intracranial [Fatal]
  - Lung infection [Unknown]
  - Enteritis infectious [Unknown]
